FAERS Safety Report 9751724 (Version 1)
Quarter: 2013Q4

REPORT INFORMATION
  Report Type: Spontaneous
  Country: IT (occurrence: IT)
  Receive Date: 20131213
  Receipt Date: 20131213
  Transmission Date: 20140711
  Serious: Yes (Hospitalization)
  Sender: FDA-Public Use
  Company Number: IT-ROCHE-1319176

PATIENT
  Age: 64 Year
  Sex: Female

DRUGS (4)
  1. BONVIVA [Suspect]
     Indication: PRODUCT USED FOR UNKNOWN INDICATION
     Route: 048
     Dates: start: 20110110, end: 20111231
  2. CALCITONIN [Concomitant]
     Indication: OSTEOPOROSIS
     Route: 030
  3. SINVACOR [Concomitant]
     Indication: HYPERCHOLESTEROLAEMIA
     Route: 048
  4. PERINDOPRIL [Concomitant]
     Indication: HYPERTENSION
     Route: 048

REACTIONS (1)
  - Periodontitis [Unknown]
